FAERS Safety Report 16904709 (Version 5)
Quarter: 2019Q4

REPORT INFORMATION
  Report Type: Spontaneous
  Country: JP (occurrence: JP)
  Receive Date: 20191010
  Receipt Date: 20191223
  Transmission Date: 20200122
  Serious: Yes (Death, Life-Threatening, Hospitalization, Other)
  Sender: FDA-Public Use
  Company Number: JP-PFIZER INC-2019306432

PATIENT
  Age: 46 Year
  Sex: Female
  Weight: 47 kg

DRUGS (11)
  1. DOCETAXEL. [Suspect]
     Active Substance: DOCETAXEL
     Indication: LUNG NEOPLASM MALIGNANT
     Dosage: 90 MG, 1X/DAY
     Route: 041
     Dates: start: 20190927, end: 20190927
  2. CELECOX [Concomitant]
     Active Substance: CELECOXIB
     Indication: CANCER PAIN
     Dosage: 200 MG, 2X/DAY
     Route: 048
     Dates: start: 20190714, end: 20190926
  3. CARBOCYSTEINE [Concomitant]
     Active Substance: CARBOCYSTEINE
     Dosage: 500 MG, 3X/DAY
     Route: 048
     Dates: start: 20180303, end: 20190930
  4. LANSOPRAZOLE. [Concomitant]
     Active Substance: LANSOPRAZOLE
     Indication: DECREASED APPETITE
     Dosage: 15 MG, 1X/DAY
     Route: 048
     Dates: start: 20190315, end: 20190930
  5. CARBAZOCHROME SODIUM SULFONATE [Suspect]
     Active Substance: CARBAZOCHROME SODIUM SULFONATE
  6. CYRAMZA [Suspect]
     Active Substance: RAMUCIRUMAB
     Indication: LUNG NEOPLASM MALIGNANT
     Dosage: 480 MG, 1X/DAY
     Route: 041
     Dates: start: 20190927, end: 20190927
  7. FENTOS [Concomitant]
     Active Substance: FENTANYL
     Indication: CANCER PAIN
     Dosage: 2 MG, 1X/DAY
     Route: 061
     Dates: start: 20190823
  8. ROSUVASTATIN. [Concomitant]
     Active Substance: ROSUVASTATIN
     Indication: HYPERLIPIDAEMIA
     Dosage: 5 MG, 1X/DAY
     Route: 048
     Dates: start: 20190722, end: 20190926
  9. LIXIANA OD [Suspect]
     Active Substance: EDOXABAN TOSYLATE
     Indication: VENOUS THROMBOSIS
     Dosage: 30 MG, 1X/DAY
     Route: 048
     Dates: start: 20180316, end: 20190926
  10. LORBRENA [Suspect]
     Active Substance: LORLATINIB
     Indication: LUNG NEOPLASM MALIGNANT
     Dosage: 100 MG, 1X/DAY
     Route: 048
     Dates: start: 20190709, end: 20190926
  11. PREDONINE [Concomitant]
     Active Substance: PREDNISOLONE
     Dosage: 7.5 MG, 1X/DAY
     Route: 048
     Dates: start: 20190819, end: 20190930

REACTIONS (9)
  - Diarrhoea [Recovering/Resolving]
  - Cerebral haemorrhage [Unknown]
  - Pancytopenia [Unknown]
  - Neoplasm progression [Fatal]
  - Altered state of consciousness [Unknown]
  - Communication disorder [Unknown]
  - Fall [Unknown]
  - Epistaxis [Unknown]
  - Asthenia [Unknown]

NARRATIVE: CASE EVENT DATE: 20190715
